FAERS Safety Report 5623221-9 (Version None)
Quarter: 2008Q1

REPORT INFORMATION
  Report Type: 
  Country: None (occurrence: None)
  Receive Date: 20080212
  Receipt Date: 20080201
  Transmission Date: 20080703
  Serious: Yes (Disabling, Other)
  Sender: FDA-Public Use
  Company Number: US-MERCK-0703USA04387

PATIENT
  Age: 72 Year
  Sex: Female

DRUGS (3)
  1. FOSAMAX [Suspect]
     Indication: OSTEOPOROSIS
     Route: 048
     Dates: start: 19970801, end: 20050401
  2. ACTONEL [Concomitant]
     Route: 065
     Dates: start: 20030401, end: 20050101
  3. ASPIRIN [Concomitant]
     Route: 065

REACTIONS (14)
  - CAROTID BRUIT [None]
  - CHRONIC OBSTRUCTIVE PULMONARY DISEASE [None]
  - DEPRESSION [None]
  - DIVERTICULUM INTESTINAL [None]
  - GOITRE [None]
  - HAEMANGIOMA OF LIVER [None]
  - HIP FRACTURE [None]
  - LARYNGITIS [None]
  - MYOFASCIAL PAIN SYNDROME [None]
  - OSTEONECROSIS [None]
  - PARATHYROID DISORDER [None]
  - RENAL CYST [None]
  - TEMPOROMANDIBULAR JOINT SYNDROME [None]
  - WEIGHT DECREASED [None]
